FAERS Safety Report 18639398 (Version 7)
Quarter: 2022Q3

REPORT INFORMATION
  Report Type: Report from Study
  Country: US (occurrence: US)
  Receive Date: 20201219
  Receipt Date: 20220920
  Transmission Date: 20221027
  Serious: Yes (Hospitalization, Other)
  Sender: FDA-Public Use
  Company Number: US-TAKEDA-US201914260

PATIENT
  Sex: Female

DRUGS (1)
  1. HUMAN IMMUNOGLOBULIN G [Suspect]
     Active Substance: HUMAN IMMUNOGLOBULIN G
     Indication: Primary immunodeficiency syndrome
     Dosage: UNK
     Route: 058

REACTIONS (12)
  - COVID-19 [Recovering/Resolving]
  - Sinusitis [Unknown]
  - Dysphagia [Unknown]
  - Weight decreased [Unknown]
  - Infusion site pain [Recovered/Resolved]
  - Ill-defined disorder [Recovering/Resolving]
  - Vertigo [Unknown]
  - Infusion site swelling [Unknown]
  - Back pain [Unknown]
  - Neuralgia [Unknown]
  - Nightmare [Unknown]
  - Somnolence [Unknown]
